FAERS Safety Report 7303931-8 (Version None)
Quarter: 2011Q1

REPORT INFORMATION
  Report Type: 
  Country: None (occurrence: None)
  Receive Date: 20110221
  Receipt Date: 20110207
  Transmission Date: 20110831
  Serious: Yes (Hospitalization)
  Sender: FDA-Public Use
  Company Number: DE-ROCHE-759705

PATIENT
  Age: 28 Day
  Sex: Male
  Weight: 3.2 kg

DRUGS (4)
  1. TEGRETOL [Suspect]
     Indication: EPILEPSY
     Dosage: DOSE: 200MG/D, DURATION: 274 DAYS
     Route: 064
  2. KEPPRA [Suspect]
     Indication: EPILEPSY
     Dosage: DOSAGE: 500 - 2000 MG/D
     Route: 064
  3. VALIUM [Suspect]
     Indication: EPILEPSY
     Dosage: DOSE: 20 MG/D, DURATION: 162 DAYS
     Route: 064
  4. FOLIC ACID [Concomitant]
     Indication: PROPHYLAXIS OF NEURAL TUBE DEFECT
     Dosage: DURATION: 273 DAYS, DOSAGE: UNKNOWN
     Route: 064

REACTIONS (2)
  - NEONATAL RESPIRATORY DISTRESS SYNDROME [None]
  - MATERNAL DRUGS AFFECTING FOETUS [None]
